FAERS Safety Report 13729407 (Version 2)
Quarter: 2017Q4

REPORT INFORMATION
  Report Type: Spontaneous
  Country: US (occurrence: US)
  Receive Date: 20170707
  Receipt Date: 20171003
  Transmission Date: 20180320
  Serious: No
  Sender: FDA-Public Use
  Company Number: US-JNJFOC-20170607688

PATIENT
  Age: 42 Year
  Sex: Female
  Weight: 55.34 kg

DRUGS (2)
  1. ELMIRON [Suspect]
     Active Substance: PENTOSAN POLYSULFATE SODIUM
     Indication: CYSTITIS INTERSTITIAL
     Route: 048
     Dates: start: 20170606, end: 20170607
  2. METHENAMINE [Concomitant]
     Active Substance: METHENAMINE
     Indication: INFECTION PROPHYLAXIS
     Route: 065
     Dates: start: 201412

REACTIONS (2)
  - Abdominal pain upper [Recovered/Resolved]
  - Diarrhoea [Recovered/Resolved]

NARRATIVE: CASE EVENT DATE: 20170607
